FAERS Safety Report 13072022 (Version 1)
Quarter: 2016Q4

REPORT INFORMATION
  Report Type: Spontaneous
  Country: GB (occurrence: GB)
  Receive Date: 20161229
  Receipt Date: 20161229
  Transmission Date: 20170207
  Serious: Yes (Life-Threatening)
  Sender: FDA-Public Use
  Company Number: GB-PFIZER INC-2016599928

PATIENT
  Age: 71 Year
  Sex: Female

DRUGS (11)
  1. ATORVASTATIN [Concomitant]
     Active Substance: ATORVASTATIN
  2. FEXOFENADINE [Concomitant]
     Active Substance: FEXOFENADINE\FEXOFENADINE HYDROCHLORIDE
  3. LOSARTAN. [Concomitant]
     Active Substance: LOSARTAN
  4. TEICOPLANIN [Concomitant]
     Active Substance: TEICOPLANIN
  5. PROPOFOL. [Concomitant]
     Active Substance: PROPOFOL
  6. GENTAMICIN SULFATE. [Suspect]
     Active Substance: GENTAMICIN SULFATE
     Indication: ARTHROSCOPY
     Dosage: 240 MG, UNK
     Route: 042
     Dates: start: 20160926, end: 20160926
  7. FENTANYL. [Concomitant]
     Active Substance: FENTANYL
  8. CLOPIDOGREL [Concomitant]
     Active Substance: CLOPIDOGREL BISULFATE
  9. ATRACURIUM [Concomitant]
     Active Substance: ATRACURIUM
  10. BECLOMETHASONE DIPROPIONATE /00212602/ [Concomitant]
     Active Substance: BECLOMETHASONE DIPROPIONATE
  11. DILTIAZEM. [Concomitant]
     Active Substance: DILTIAZEM

REACTIONS (1)
  - Anaphylactic reaction [Recovered/Resolved]

NARRATIVE: CASE EVENT DATE: 20160926
